FAERS Safety Report 5253176-0 (Version None)
Quarter: 2007Q1

REPORT INFORMATION
  Report Type: 
  Country: None (occurrence: None)
  Receive Date: 20070301
  Receipt Date: 20070215
  Transmission Date: 20070707
  Serious: Yes (Disabling, Other)
  Sender: FDA-Public Use
  Company Number: PHBS2007IT03128

PATIENT
  Age: 75 Year
  Sex: Male

DRUGS (1)
  1. GLEEVEC [Suspect]
     Indication: CHRONIC MYELOID LEUKAEMIA
     Dosage: 400 MG/DAY
     Route: 048
     Dates: start: 20050201

REACTIONS (4)
  - ARTHRALGIA [None]
  - OSTEONECROSIS [None]
  - PROSTATE CANCER [None]
  - PROSTATIC OPERATION [None]
